FAERS Safety Report 21410843 (Version 1)
Quarter: 2022Q4

REPORT INFORMATION
  Report Type: Spontaneous
  Country: US (occurrence: None)
  Receive Date: 20221003
  Receipt Date: 20221003
  Transmission Date: 20230113
  Serious: Yes (unspecified)
  Sender: FDA-Public Use
  Company Number: None

PATIENT
  Age: 43 Year
  Sex: Male
  Weight: 87.75 kg

DRUGS (2)
  1. BENZOIN TINCTURE [Suspect]
     Active Substance: BENZOIN RESIN
     Indication: Surgery
     Dosage: FREQUENCY : ONCE;  WITH STERI STRIP?
     Route: 061
  2. BANDAGE [Suspect]
     Active Substance: BENZALKONIUM CHLORIDE

REACTIONS (1)
  - Dermatitis contact [None]

NARRATIVE: CASE EVENT DATE: 20220916
